FAERS Safety Report 10259058 (Version 2)
Quarter: 2014Q2

REPORT INFORMATION
  Report Type: Spontaneous
  Country: US (occurrence: US)
  Receive Date: 20140625
  Receipt Date: 20140625
  Transmission Date: 20141212
  Serious: No
  Sender: FDA-Public Use
  Company Number: US-ASTELLAS-2013US010390

PATIENT
  Age: 57 Year
  Sex: Female

DRUGS (2)
  1. VESICARE [Suspect]
     Indication: HYPERTONIC BLADDER
     Route: 048
     Dates: start: 20130917, end: 20130923
  2. LASIX                              /00032601/ [Suspect]
     Indication: CARDIAC FAILURE CONGESTIVE
     Route: 065

REACTIONS (3)
  - Weight increased [Recovered/Resolved]
  - Drug interaction [Unknown]
  - Oedema peripheral [Recovered/Resolved]
